FAERS Safety Report 6246684-7 (Version None)
Quarter: 2009Q2

REPORT INFORMATION
  Report Type: 
  Country: None (occurrence: None)
  Receive Date: 20090626
  Receipt Date: 20090623
  Transmission Date: 20091009
  Serious: No
  Sender: FDA-Public Use
  Company Number: US-B.I. PHARMACEUTICALS,INC./RIDGEFIELD-2009-BP-07645BP

PATIENT
  Age: 50 Year
  Sex: Male

DRUGS (3)
  1. VIRAMUNE [Suspect]
     Indication: HIV INFECTION
     Dates: start: 19970101
  2. ZERIT [Suspect]
     Indication: HIV INFECTION
  3. VIDEX [Concomitant]
     Indication: HIV INFECTION

REACTIONS (1)
  - NEUROPATHY PERIPHERAL [None]
